FAERS Safety Report 11746350 (Version 2)
Quarter: 2015Q4

REPORT INFORMATION
  Report Type: Spontaneous
  Country: ES (occurrence: ES)
  Receive Date: 20151117
  Receipt Date: 20151130
  Transmission Date: 20160304
  Serious: Yes (Hospitalization)
  Sender: FDA-Public Use
  Company Number: ES-TEVA-609754ISR

PATIENT
  Age: 66 Year
  Sex: Male

DRUGS (2)
  1. AMOXICILLIN. [Suspect]
     Active Substance: AMOXICILLIN
     Indication: TOOTHACHE
     Route: 048
  2. CLAVULANIC ACID [Concomitant]
     Active Substance: CLAVULANIC ACID
     Indication: TOOTHACHE
     Route: 065

REACTIONS (1)
  - Meningitis aseptic [Recovering/Resolving]
